FAERS Safety Report 6275027-8 (Version None)
Quarter: 2009Q3

REPORT INFORMATION
  Report Type: 
  Country: None (occurrence: None)
  Receive Date: 20090721
  Receipt Date: 20090713
  Transmission Date: 20100115
  Serious: Yes (Life-Threatening)
  Sender: FDA-Public Use
  Company Number: JP-ASTRAZENECA-2009SE05067

PATIENT
  Age: 22296 Day
  Sex: Female

DRUGS (10)
  1. BLOPRESS [Suspect]
     Indication: HYPERTENSION
     Route: 048
     Dates: start: 20021105, end: 20031216
  2. BLOPRESS [Interacting]
     Route: 048
     Dates: start: 20031217
  3. TANATRIL [Interacting]
     Route: 048
     Dates: start: 20081107
  4. EVOXAC [Interacting]
     Route: 048
     Dates: start: 20061201, end: 20090310
  5. CERCINE [Concomitant]
     Route: 048
     Dates: start: 20021017
  6. ASPIRIN [Concomitant]
     Route: 048
  7. GASTER D [Concomitant]
     Route: 048
  8. SHIMBU-TO [Concomitant]
     Route: 048
  9. HICEE GRANULES 25% [Concomitant]
     Route: 048
  10. MYSLEE [Concomitant]
     Route: 048

REACTIONS (2)
  - DRUG INTERACTION [None]
  - HYPERTENSION [None]
